FAERS Safety Report 6842189-0 (Version None)
Quarter: 2010Q3

REPORT INFORMATION
  Report Type: 
  Country: None (occurrence: None)
  Receive Date: 20100714
  Receipt Date: 20071009
  Transmission Date: 20110219
  Serious: No
  Sender: FDA-Public Use
  Company Number: US-PFIZER INC-2007061200

PATIENT
  Weight: 58.1 kg

DRUGS (1)
  1. CHANTIX [Suspect]
     Dates: start: 20070702, end: 20070707

REACTIONS (2)
  - DRUG INEFFECTIVE [None]
  - NAUSEA [None]
